FAERS Safety Report 10045465 (Version 2)
Quarter: 2014Q1

REPORT INFORMATION
  Report Type: Spontaneous
  Country: FR (occurrence: FR)
  Receive Date: 20140328
  Receipt Date: 20140328
  Transmission Date: 20141002
  Serious: Yes (Hospitalization)
  Sender: FDA-Public Use
  Company Number: FR-BRISTOL-MYERS SQUIBB COMPANY-20541702

PATIENT
  Age: 91 Year
  Sex: Male

DRUGS (10)
  1. METFORMIN HCL [Suspect]
     Indication: DIABETES MELLITUS
     Dosage: 1700 MG
     Route: 048
     Dates: start: 2008, end: 20140210
  2. CAPTOPRIL [Suspect]
     Indication: PROPHYLAXIS
     Dosage: 50 MG TABS
     Route: 048
     Dates: end: 201402
  3. CARDENSIEL [Suspect]
     Indication: PROPHYLAXIS
     Dosage: ONE FILM-COATED TABS
     Route: 048
  4. SIMVASTATIN TAB [Suspect]
     Indication: PROPHYLAXIS
     Route: 048
  5. AERIUS [Suspect]
     Dosage: TABS
     Route: 048
     Dates: end: 201402
  6. DEDROGYL [Suspect]
     Dosage: 15 MG/L00 ML, ORAL SOLUTION
     Route: 048
     Dates: end: 201402
  7. NATISPRAY [Suspect]
     Route: 060
     Dates: end: 201402
  8. KARDEGIC [Suspect]
     Indication: PROPHYLAXIS
     Dosage: 1 SACHET
     Route: 048
  9. EUPANTOL [Suspect]
     Dosage: TABS
     Route: 048
     Dates: end: 20140212
  10. LASILIX [Suspect]
     Dosage: 40 MG TABS
     Route: 048
     Dates: end: 201402

REACTIONS (3)
  - Diarrhoea [Recovered/Resolved]
  - Colitis microscopic [Unknown]
  - Weight decreased [Unknown]
